FAERS Safety Report 8533292-8 (Version None)
Quarter: 2012Q3

REPORT INFORMATION
  Report Type: 
  Country: None (occurrence: None)
  Receive Date: 20120724
  Receipt Date: 20120716
  Transmission Date: 20120928
  Serious: No
  Sender: FDA-Public Use
  Company Number: MY-SANOFI-AVENTIS-2012SA050435

PATIENT
  Sex: Female

DRUGS (3)
  1. LOVASTATIN [Concomitant]
     Dosage: STRENGTH: 20MG
     Route: 048
  2. CELEBREX [Concomitant]
     Dosage: STRENGTH: 200MG
     Route: 048
  3. ARAVA [Suspect]
     Route: 048
     Dates: start: 20111101

REACTIONS (1)
  - MATERNAL EXPOSURE DURING PREGNANCY [None]
